FAERS Safety Report 18105155 (Version 1)
Quarter: 2020Q3

REPORT INFORMATION
  Report Type: Report from Study
  Country: GB (occurrence: GB)
  Receive Date: 20200804
  Receipt Date: 20200804
  Transmission Date: 20201103
  Serious: Yes (Other)
  Sender: FDA-Public Use
  Company Number: GB-BEH-2020120576

PATIENT
  Age: 35 Year
  Sex: Female

DRUGS (2)
  1. HUMAN IMMUNOGLOBULIN (GENERIC) [Suspect]
     Active Substance: HUMAN IMMUNOGLOBULIN G
     Indication: FOETAL CARDIAC DISORDER
     Dosage: 400 MILLIGRAM/KILOGRAM OVER 8 HOURS EVERY THREE WEEKS
     Route: 042
     Dates: start: 2007
  2. HUMAN IMMUNOGLOBULIN (GENERIC) [Suspect]
     Active Substance: HUMAN IMMUNOGLOBULIN G
     Indication: PROPHYLAXIS

REACTIONS (4)
  - Abortion induced [Unknown]
  - Exposure during pregnancy [Unknown]
  - Product use in unapproved indication [Unknown]
  - No adverse event [Unknown]
